FAERS Safety Report 5850705-0 (Version None)
Quarter: 2008Q3

REPORT INFORMATION
  Report Type: 
  Country: None (occurrence: None)
  Receive Date: 20080818
  Receipt Date: 20080813
  Transmission Date: 20090109
  Serious: Yes (Hospitalization)
  Sender: FDA-Public Use
  Company Number: 2008SP016394

PATIENT
  Age: 65 Year
  Sex: Female
  Weight: 74 kg

DRUGS (4)
  1. VIRAFERONPEG [Suspect]
     Indication: HEPATITIS C
     Dosage: 0.5 MCG/KG; QW; SC
     Route: 058
     Dates: start: 20061212
  2. BLINDED PEGINTERFERON ALFA-2B (S-P) [Suspect]
     Indication: HEPATITIS C
     Dosage: 1200 MG;QD; PO; 1000 MG;QD;PO; 600 MG;QD;PO
     Route: 048
     Dates: start: 20061212, end: 20070209
  3. BLINDED PEGINTERFERON ALFA-2B (S-P) [Suspect]
     Indication: HEPATITIS C
     Dosage: 1200 MG;QD; PO; 1000 MG;QD;PO; 600 MG;QD;PO
     Route: 048
     Dates: start: 20070210, end: 20080312
  4. BLINDED PEGINTERFERON ALFA-2B (S-P) [Suspect]
     Indication: HEPATITIS C
     Dosage: 1200 MG;QD; PO; 1000 MG;QD;PO; 600 MG;QD;PO
     Route: 048
     Dates: start: 20080313

REACTIONS (2)
  - PROTHROMBIN LEVEL DECREASED [None]
  - PULMONARY EMBOLISM [None]
